FAERS Safety Report 20554101 (Version 1)
Quarter: 2022Q1

REPORT INFORMATION
  Report Type: Spontaneous
  Country: CN (occurrence: CN)
  Receive Date: 20220304
  Receipt Date: 20220304
  Transmission Date: 20220423
  Serious: Yes (Other)
  Sender: FDA-Public Use
  Company Number: CN-BAXTER-2022BAX004248

PATIENT
  Age: 56 Year
  Sex: Male
  Weight: 49 kg

DRUGS (9)
  1. IFOSFAMIDE [Suspect]
     Active Substance: IFOSFAMIDE
     Indication: Neoplasm malignant
     Dosage: 0.9% SODIUM CHLORIDE INJECTION 500ML + (HOLOXAN) IFOSFAMIDE FOR INJECTION 3.8G IVGTT D1-4
     Route: 041
     Dates: start: 20220117, end: 20220120
  2. IFOSFAMIDE [Suspect]
     Active Substance: IFOSFAMIDE
     Dosage: NEOADJUVANT IA TREATMENT, HOLOXAN + 0.9% SODIUM CHLORIDE INJECTION (D1-4), DOSE RE-INTRODUCED
     Route: 041
  3. DEXTROSE [Suspect]
     Active Substance: DEXTROSE
     Indication: Medication dilution
     Dosage: NEOADJUVANT IA TREATMENT, LIXING INJECTION (40MG) + 5% GLUCOSE INJECTION 250ML (D1)
     Route: 041
     Dates: start: 20220117, end: 20220117
  4. DEXTROSE [Suspect]
     Active Substance: DEXTROSE
     Dosage: LIXING   + 5% GLUCOSE INJECTION (D1), (DOSE RE-INTRODUCED)
     Route: 041
  5. SODIUM CHLORIDE [Suspect]
     Active Substance: SODIUM CHLORIDE
     Indication: Medication dilution
     Dosage: 0.9% SODIUM CHLORIDE INJECTION 500ML + (HOLOXAN) IFOSFAMIDE FOR INJECTION 3.8G IVGTT D1-4
     Route: 041
     Dates: start: 20220117, end: 20220120
  6. SODIUM CHLORIDE [Suspect]
     Active Substance: SODIUM CHLORIDE
     Dosage: NEOADJUVANT IA TREATMENT, HOLOXAN + 0.9% SODIUM CHLORIDE INJECTION, DOSE RE-INTRODUCED
     Route: 041
  7. DOXORUBICIN HYDROCHLORIDE [Suspect]
     Active Substance: DOXORUBICIN HYDROCHLORIDE
     Indication: Neoplasm malignant
     Dosage: (LIXING) DOXORUBICIN HYDROCHLORIDE LIPOSOME INJECTION (40MG) + 5% GLUCOSE INJECTION 250ML (D1)
     Route: 041
     Dates: start: 20220117, end: 20220117
  8. DOXORUBICIN HYDROCHLORIDE [Suspect]
     Active Substance: DOXORUBICIN HYDROCHLORIDE
     Dosage: (LIXING) DOXORUBICIN HYDROCHLORIDE LIPOSOME INJECTION + 5% GLUCOSE INJECTION (D1), (DOSE RE-INTRODUC
     Route: 041
  9. Daimaling [Concomitant]
     Indication: Anti-infective therapy
     Dosage: 1G IVGTT BID
     Route: 041
     Dates: start: 20220125, end: 20220129

REACTIONS (1)
  - Myelosuppression [Recovering/Resolving]

NARRATIVE: CASE EVENT DATE: 20220125
